FAERS Safety Report 11115312 (Version 1)
Quarter: 2015Q2

REPORT INFORMATION
  Report Type: Spontaneous
  Country: CH (occurrence: CH)
  Receive Date: 20150515
  Receipt Date: 20150515
  Transmission Date: 20150821
  Serious: Yes (Other)
  Sender: FDA-Public Use
  Company Number: CH-ASTELLAS-2015US010111

PATIENT
  Sex: Male

DRUGS (1)
  1. BETMIGA [Suspect]
     Active Substance: MIRABEGRON
     Indication: STRESS URINARY INCONTINENCE
     Route: 065
     Dates: start: 20150204, end: 20150216

REACTIONS (1)
  - Stress urinary incontinence [Recovering/Resolving]

NARRATIVE: CASE EVENT DATE: 20150204
